FAERS Safety Report 8517864-2 (Version None)
Quarter: 2012Q3

REPORT INFORMATION
  Report Type: 
  Country: None (occurrence: None)
  Receive Date: 20120718
  Receipt Date: 20110622
  Transmission Date: 20120928
  Serious: Yes (Other)
  Sender: FDA-Public Use
  Company Number: US-BRISTOL-MYERS SQUIBB COMPANY-15850423

PATIENT
  Age: 67 Year
  Sex: Male

DRUGS (4)
  1. ZOCOR [Concomitant]
  2. FLONASE [Concomitant]
  3. COUMADIN [Suspect]
     Dosage: UP TO 10 MG
  4. METFORMIN HYDROCHLORIDE [Concomitant]

REACTIONS (1)
  - EYE HAEMORRHAGE [None]
